FAERS Safety Report 9962252 (Version 1)
Quarter: 2014Q1

REPORT INFORMATION
  Report Type: Spontaneous
  Country: US (occurrence: US)
  Receive Date: 20140305
  Receipt Date: 20140305
  Transmission Date: 20141002
  Serious: No
  Sender: FDA-Public Use
  Company Number: US-ABBVIE-13P-163-1114207-00

PATIENT
  Age: 40 Year
  Sex: Female
  Weight: 116.22 kg

DRUGS (8)
  1. HUMIRA [Suspect]
     Indication: CROHN^S DISEASE
     Dates: start: 201211
  2. ALIGN [Concomitant]
     Indication: CROHN^S DISEASE
  3. NORTRIPTYLINE [Concomitant]
     Indication: IRRITABLE BOWEL SYNDROME
  4. HYOSCYAMINE [Concomitant]
     Indication: IRRITABLE BOWEL SYNDROME
  5. MECLIZINE [Concomitant]
     Indication: PRODUCT USED FOR UNKNOWN INDICATION
  6. VITAMIN B12 [Concomitant]
     Indication: CROHN^S DISEASE
  7. VITAMIN D2 [Concomitant]
     Indication: CROHN^S DISEASE
  8. OESTRADIOL [Concomitant]
     Indication: MENSTRUAL DISORDER

REACTIONS (2)
  - Blister [Recovered/Resolved]
  - Injection site erythema [Recovering/Resolving]
